FAERS Safety Report 10618621 (Version 1)
Quarter: 2014Q4

REPORT INFORMATION
  Report Type: Report from Study
  Country: SG (occurrence: SG)
  Receive Date: 20141202
  Receipt Date: 20141202
  Transmission Date: 20150529
  Serious: Yes (Other)
  Sender: FDA-Public Use
  Company Number: SG-BAYER-2014-173785

PATIENT
  Sex: Female

DRUGS (4)
  1. SALBUTAMOL [Suspect]
     Active Substance: ALBUTEROL
     Indication: PROPHYLAXIS
     Dosage: 5 MG IN 500 ML OF 0.9% SODIUM CHLORIDE SOLUTION
     Route: 042
  2. DEXAMETHASONE. [Concomitant]
     Active Substance: DEXAMETHASONE
     Dosage: 12 MG, BID
     Route: 030
  3. ADALAT [Suspect]
     Active Substance: NIFEDIPINE
     Indication: PROPHYLAXIS
     Dosage: LOADING DOSE 10 MG, EVERY 15 MIN FOR ONE HOUR
     Route: 048
  4. ADALAT [Suspect]
     Active Substance: NIFEDIPINE
     Indication: PROPHYLAXIS
     Dosage: 20 MG, QID, MAINTENANCE DOSE
     Route: 048

REACTIONS (3)
  - Exposure during pregnancy [None]
  - Product use issue [None]
  - Respiratory depression [None]
